FAERS Safety Report 19898444 (Version 4)
Quarter: 2021Q4

REPORT INFORMATION
  Report Type: Spontaneous
  Country: US (occurrence: US)
  Receive Date: 20210929
  Receipt Date: 20211204
  Transmission Date: 20220304
  Serious: No
  Sender: FDA-Public Use
  Company Number: NVSC2021US218534

PATIENT
  Sex: Female

DRUGS (2)
  1. XIIDRA [Suspect]
     Active Substance: LIFITEGRAST
     Indication: Product used for unknown indication
     Dosage: 1 DRP (GTT), BID (IN BOTH EYES)
     Route: 065
     Dates: start: 202012
  2. XIIDRA [Suspect]
     Active Substance: LIFITEGRAST
     Dosage: 1 DRP
     Route: 065

REACTIONS (5)
  - Eye irritation [Unknown]
  - Frustration tolerance decreased [Unknown]
  - Product container issue [Unknown]
  - Product storage error [Unknown]
  - Product dose omission issue [Unknown]
